FAERS Safety Report 17798062 (Version 1)
Quarter: 2020Q2

REPORT INFORMATION
  Report Type: Spontaneous
  Country: NP (occurrence: NP)
  Receive Date: 20200518
  Receipt Date: 20200518
  Transmission Date: 20200714
  Serious: Yes (Hospitalization)
  Sender: FDA-Public Use
  Company Number: NP-STRIDES ARCOLAB LIMITED-2020SP005740

PATIENT
  Age: 26 Year
  Sex: Male

DRUGS (2)
  1. AMLODIPINE [Suspect]
     Active Substance: AMLODIPINE BESYLATE
     Indication: PRODUCT USED FOR UNKNOWN INDICATION
     Dosage: 28 TABLETS, TOTAL UNDER INFLUENCE OF ALCOHOL
     Route: 048
  2. AMLODIPINE [Suspect]
     Active Substance: AMLODIPINE BESYLATE
     Dosage: 42 TABLETS, TOTAL, FOR SUICIDAL PURPOSES
     Route: 048

REACTIONS (5)
  - Suicide attempt [Unknown]
  - Somnolence [Recovered/Resolved]
  - Abdominal discomfort [Recovered/Resolved]
  - Overdose [Unknown]
  - Ocular hyperaemia [Recovered/Resolved]
